FAERS Safety Report 4553155-2 (Version None)
Quarter: 2005Q1

REPORT INFORMATION
  Report Type: 
  Country: None (occurrence: None)
  Receive Date: 20050114
  Receipt Date: 20050105
  Transmission Date: 20050727
  Serious: Yes (Life-Threatening, Hospitalization)
  Sender: FDA-Public Use
  Company Number: FR-GLAXOSMITHKLINE-B0363767B

PATIENT
  Sex: Male
  Weight: 2.8 kg

DRUGS (5)
  1. RETROVIR [Suspect]
     Indication: ANTIVIRAL PROPHYLAXIS
     Route: 048
     Dates: start: 20041021, end: 20041023
  2. RETROVIR [Suspect]
     Dates: start: 20041021, end: 20041021
  3. RETROVIR [Suspect]
     Indication: HIV INFECTION
     Dosage: 600MG TWICE PER DAY
  4. GAVISCON [Concomitant]
     Dates: start: 20041005
  5. URSOLVAN [Concomitant]

REACTIONS (7)
  - DRUG EXPOSURE DURING PREGNANCY [None]
  - HAEMATOCHEZIA [None]
  - HYPOGLYCAEMIA [None]
  - NECROTISING ENTEROCOLITIS NEONATAL [None]
  - PALLOR [None]
  - VOMITING [None]
  - X-RAY ABNORMAL [None]
